FAERS Safety Report 11159705 (Version 1)
Quarter: 2015Q2

REPORT INFORMATION
  Report Type: Spontaneous
  Country: US (occurrence: None)
  Receive Date: 20150602
  Receipt Date: 20150602
  Transmission Date: 20150821
  Serious: Yes (Disabling)
  Sender: FDA-Public Use
  Company Number: None

PATIENT
  Age: 54 Year
  Sex: Female
  Weight: 63.5 kg

DRUGS (7)
  1. LEVAQUIN [Suspect]
     Active Substance: LEVOFLOXACIN
     Indication: LOWER RESPIRATORY TRACT INFECTION
     Dosage: 1  ONCE DAILY TAKEN BY MOUTH
     Route: 048
     Dates: start: 20150304, end: 20150313
  2. MAGNESIUM [Concomitant]
     Active Substance: MAGNESIUM
  3. OMEGA 3 [Concomitant]
     Active Substance: OMEGA-3 FATTY ACIDS
  4. LECITHIN [Concomitant]
     Active Substance: LECITHIN
  5. VITAMIN K [Concomitant]
     Active Substance: PHYTONADIONE
  6. B6 [Concomitant]
     Active Substance: PYRIDOXINE HYDROCHLORIDE
  7. D3 [Concomitant]
     Active Substance: 25-HYDROXYCHOLECALCIFEROL, 5-TRANS-

REACTIONS (1)
  - Tendonitis [None]

NARRATIVE: CASE EVENT DATE: 20150314
